FAERS Safety Report 9117417 (Version 1)
Quarter: 2013Q1

REPORT INFORMATION
  Report Type: Spontaneous
  Country: JP (occurrence: JP)
  Receive Date: 20130208
  Receipt Date: 20130208
  Transmission Date: 20140127
  Serious: Yes (Death, Other)
  Sender: FDA-Public Use
  Company Number: JP-AMGEN-JPNSP2013008769

PATIENT
  Age: 62 Year
  Sex: Female

DRUGS (7)
  1. VECTIBIX [Suspect]
     Indication: COLON CANCER
     Dosage: UNK
     Route: 041
  2. PREDNISOLONE [Concomitant]
     Indication: RHEUMATOID ARTHRITIS
     Dosage: 5 MG, UNK
     Route: 065
  3. OXALIPLATIN [Concomitant]
     Indication: COLON CANCER
     Dosage: UNK UNK, Q2WK
     Route: 041
  4. FLUOROURACIL [Concomitant]
     Indication: COLON CANCER
     Dosage: UNK UNK, Q2WK
     Route: 042
  5. CALCIUM LEVOFOLINATE [Concomitant]
     Indication: COLON CANCER
     Dosage: UNK UNK, Q2WK
     Route: 041
  6. POLYSACCHARIDE-K [Concomitant]
     Indication: COLON CANCER
     Dosage: UNK
     Route: 048
  7. ZOLEDRONIC ACID [Concomitant]
     Indication: COLON CANCER
     Dosage: UNK
     Route: 042

REACTIONS (5)
  - Hepatic failure [Fatal]
  - Spinal compression fracture [Unknown]
  - Neutropenia [Unknown]
  - Neuropathy peripheral [Unknown]
  - Skin disorder [Unknown]
